FAERS Safety Report 24857760 (Version 1)
Quarter: 2025Q1

REPORT INFORMATION
  Report Type: Spontaneous
  Country: US (occurrence: None)
  Receive Date: 20250117
  Receipt Date: 20250117
  Transmission Date: 20250409
  Serious: Yes (unspecified)
  Sender: FDA-CTU
  Company Number: None

PATIENT
  Age: 59 Year
  Sex: Female
  Weight: 55.8 kg

DRUGS (12)
  1. HIBICLENS [Suspect]
     Active Substance: CHLORHEXIDINE GLUCONATE
     Indication: Infection prophylaxis
     Dates: start: 20250110, end: 20250110
  2. ESTROGENS [Concomitant]
     Active Substance: ESTROGENS
  3. TESTOSTERONE [Concomitant]
     Active Substance: TESTOSTERONE
  4. PROGESTERONE [Concomitant]
     Active Substance: PROGESTERONE
  5. Vit C, A,E,D, B1,B2,B6,B12 [Concomitant]
  6. ZINC [Concomitant]
     Active Substance: ZINC
  7. QUERCETIN [Concomitant]
     Active Substance: QUERCETIN
  8. MAGNESIUM MALATE [Concomitant]
     Active Substance: MAGNESIUM MALATE
  9. Glycinate [Concomitant]
  10. PQQ [Concomitant]
  11. LEVOCARNITINE [Concomitant]
     Active Substance: LEVOCARNITINE
  12. K7 [Concomitant]

REACTIONS (4)
  - Impaired healing [None]
  - Rash [None]
  - Reaction to azo-dyes [None]
  - Reaction to excipient [None]

NARRATIVE: CASE EVENT DATE: 20250110
